APPROVED DRUG PRODUCT: ENSACOVE
Active Ingredient: ENSARTINIB HYDROCHLORIDE
Strength: EQ 25MG BASE
Dosage Form/Route: CAPSULE;ORAL
Application: N218171 | Product #001
Applicant: XCOVERY HOLDINGS INC
Approved: Dec 18, 2024 | RLD: Yes | RS: No | Type: RX

PATENTS:
Patent 10899744 | Expires: Jun 1, 2037
Patent 9296724 | Expires: Jun 18, 2029
Patent 8551995 | Expires: Feb 9, 2029
Patent 9126947 | Expires: Nov 29, 2031

EXCLUSIVITY:
Code: NCE | Date: Dec 18, 2029